FAERS Safety Report 6699477-0 (Version None)
Quarter: 2010Q2

REPORT INFORMATION
  Report Type: 
  Country: None (occurrence: None)
  Receive Date: 20100426
  Receipt Date: 20100406
  Transmission Date: 20101027
  Serious: Yes (Other)
  Sender: FDA-Public Use
  Company Number: JP-SOLVAY-00310001670

PATIENT
  Age: 32 Year
  Sex: Male

DRUGS (6)
  1. FLUVOXAMINE MALEATE [Suspect]
     Indication: SOCIAL PHOBIA
     Dosage: 50 MILLIGRAMS(S) ORAL 100 MILLIGRAM(S) ORAL 75 MILLIGRAM(S) ORAL
     Route: 048
     Dates: start: 20080902, end: 20100221
  2. FLUVOXAMINE MALEATE [Suspect]
     Indication: SOCIAL PHOBIA
     Dosage: 50 MILLIGRAMS(S) ORAL 100 MILLIGRAM(S) ORAL 75 MILLIGRAM(S) ORAL
     Route: 048
     Dates: start: 20100222, end: 20100307
  3. FLUVOXAMINE MALEATE [Suspect]
     Indication: SOCIAL PHOBIA
     Dosage: 50 MILLIGRAMS(S) ORAL 100 MILLIGRAM(S) ORAL 75 MILLIGRAM(S) ORAL
     Route: 048
     Dates: start: 20100308
  4. SILECE (FLUNITRAZEPAM) [Concomitant]
  5. MEILAX (ETHYL LOFLAZEPATE) [Concomitant]
  6. ZOLPIDEM TARTRATE [Concomitant]

REACTIONS (1)
  - LOSS OF CONSCIOUSNESS [None]
